FAERS Safety Report 13334978 (Version 1)
Quarter: 2017Q1

REPORT INFORMATION
  Report Type: Spontaneous
  Country: US (occurrence: US)
  Receive Date: 20170314
  Receipt Date: 20170314
  Transmission Date: 20170428
  Serious: Yes (Death)
  Sender: FDA-Public Use
  Company Number: US-BAUSCH-BL-2017-006189

PATIENT
  Age: 49 Year
  Sex: Male

DRUGS (2)
  1. XENAZINE [Suspect]
     Active Substance: TETRABENAZINE
     Indication: HUNTINGTON^S DISEASE
     Dosage: 25 MG TWO TABLETS IN THE MORNING AND ONE TABLET IN THE EVENING
     Route: 048
     Dates: end: 201702
  2. TETRABENAZINE. [Suspect]
     Active Substance: TETRABENAZINE
     Indication: HUNTINGTON^S DISEASE
     Route: 048
     Dates: start: 201702

REACTIONS (2)
  - Death [Fatal]
  - Overdose [Unknown]

NARRATIVE: CASE EVENT DATE: 20170307
